FAERS Safety Report 14833227 (Version 2)
Quarter: 2018Q2

REPORT INFORMATION
  Report Type: Report from Study
  Country: US (occurrence: US)
  Receive Date: 20180501
  Receipt Date: 20180515
  Transmission Date: 20180711
  Serious: Yes (Hospitalization)
  Sender: FDA-Public Use
  Company Number: US-BAYER-2018-078776

PATIENT
  Age: 59 Year
  Sex: Female

DRUGS (1)
  1. NEXAVAR [Suspect]
     Active Substance: SORAFENIB
     Indication: HEPATOCELLULAR CARCINOMA
     Dosage: 400 MG, BID
     Route: 048
     Dates: start: 20180320, end: 20180420

REACTIONS (19)
  - Fatigue [Not Recovered/Not Resolved]
  - Decreased appetite [None]
  - Diarrhoea [Recovering/Resolving]
  - Urinary tract infection [Recovering/Resolving]
  - Confusional state [Recovering/Resolving]
  - Vomiting [None]
  - Intra-abdominal fluid collection [None]
  - Hypotension [Recovering/Resolving]
  - Dyspnoea [Recovering/Resolving]
  - Asthenia [Not Recovered/Not Resolved]
  - Abdominal discomfort [None]
  - Chest pain [None]
  - Vaginal haemorrhage [Recovering/Resolving]
  - Drug intolerance [None]
  - Ammonia increased [Recovering/Resolving]
  - Intra-abdominal fluid collection [Recovering/Resolving]
  - Nausea [None]
  - Fatigue [Recovering/Resolving]
  - Headache [None]

NARRATIVE: CASE EVENT DATE: 20180419
